FAERS Safety Report 5007332-7 (Version None)
Quarter: 2006Q2

REPORT INFORMATION
  Report Type: 
  Country: None (occurrence: None)
  Receive Date: 20060517
  Receipt Date: 20060501
  Transmission Date: 20061013
  Serious: Yes (Other)
  Sender: FDA-Public Use
  Company Number: US200602004332

PATIENT
  Age: 62 Year
  Sex: Male

DRUGS (2)
  1. CIALIS [Suspect]
     Indication: ERECTILE DYSFUNCTION
     Dosage: 20 MG, AS NEEDED
     Dates: start: 20040216
  2. SAW PALMETTO (SERENOA REPENS) [Concomitant]

REACTIONS (7)
  - BLINDNESS UNILATERAL [None]
  - CATARACT [None]
  - EYE HAEMORRHAGE [None]
  - INTRAOCULAR PRESSURE DECREASED [None]
  - OPTIC ISCHAEMIC NEUROPATHY [None]
  - PAPILLOEDEMA [None]
  - PUPILLARY REFLEX IMPAIRED [None]
